FAERS Safety Report 7409979-7 (Version None)
Quarter: 2011Q2

REPORT INFORMATION
  Report Type: 
  Country: None (occurrence: None)
  Receive Date: 20110412
  Receipt Date: 20110331
  Transmission Date: 20111010
  Serious: Yes (Hospitalization)
  Sender: FDA-Public Use
  Company Number: PHHY2011PK26580

PATIENT
  Age: 65 Year
  Sex: Female
  Weight: 63 kg

DRUGS (6)
  1. CANDESARTAN CILEXETIL W/HYDROCHLOROTHIAZIDE [Concomitant]
     Indication: HYPERTENSION
     Route: 048
  2. ACLASTA [Suspect]
     Indication: OSTEOPOROSIS
     Route: 042
     Dates: start: 20100408
  3. ROCK-D MARATHON [Concomitant]
     Indication: OSTEOPOROSIS
     Route: 048
  4. THYROXINE [Concomitant]
     Indication: HYPOTHYROIDISM
     Route: 048
  5. DIURETICS [Concomitant]
     Route: 048
  6. ANTI HYPERLIPIDEMIC DRUGS [Concomitant]
     Indication: HYPERCHOLESTEROLAEMIA

REACTIONS (10)
  - SWELLING FACE [None]
  - GENERALISED OEDEMA [None]
  - ABASIA [None]
  - CHILLS [None]
  - PYREXIA [None]
  - HEART RATE DECREASED [None]
  - FALL [None]
  - HYPERHIDROSIS [None]
  - SOMNOLENCE [None]
  - FEBRILE CONVULSION [None]
